FAERS Safety Report 12878712 (Version 4)
Quarter: 2017Q2

REPORT INFORMATION
  Report Type: Spontaneous
  Country: FR (occurrence: FR)
  Receive Date: 20161024
  Receipt Date: 20170619
  Transmission Date: 20170830
  Serious: Yes (Death, Hospitalization, Other)
  Sender: FDA-Public Use
  Company Number: FR-BAUSCH-BL-2016-026068

PATIENT
  Age: 12 Year
  Sex: Female
  Weight: 19 kg

DRUGS (3)
  1. XENAZINE [Suspect]
     Active Substance: TETRABENAZINE
     Indication: DYSTONIA
     Route: 065
     Dates: start: 201411
  2. XENAZINE [Suspect]
     Active Substance: TETRABENAZINE
     Dosage: HALF TABLET IN THE MORNING AND HALF AT NIGHT
     Route: 048
  3. XENAZINE [Suspect]
     Active Substance: TETRABENAZINE
     Dosage: ONE TABLET IN THE MORNING AND A HALF A TABLET IN THE EVENING
     Route: 048
     Dates: start: 20160706, end: 20160706

REACTIONS (7)
  - Neuroleptic malignant syndrome [Fatal]
  - Off label use [Unknown]
  - Hyperkalaemia [Fatal]
  - Septic shock [Fatal]
  - Metabolic acidosis [Fatal]
  - Acute kidney injury [Fatal]
  - Coma [Fatal]

NARRATIVE: CASE EVENT DATE: 20160707
